FAERS Safety Report 7051811-8 (Version None)
Quarter: 2010Q4

REPORT INFORMATION
  Report Type: 
  Country: None (occurrence: None)
  Receive Date: 20101019
  Receipt Date: 20101013
  Transmission Date: 20110411
  Serious: Yes (Death, Hospitalization)
  Sender: FDA-Public Use
  Company Number: IT-JNJFOC-20101004671

PATIENT
  Age: 57 Year
  Sex: Female

DRUGS (5)
  1. CAELYX [Suspect]
     Indication: METASTATIC NEOPLASM
     Route: 042
  2. GEMZAR [Suspect]
     Indication: METASTATIC NEOPLASM
     Route: 042
  3. EPREX [Suspect]
     Indication: ANAEMIA
     Route: 058
  4. ZOFRAN [Concomitant]
     Indication: PRODUCT USED FOR UNKNOWN INDICATION
     Route: 042
  5. DEXAMETHASONE [Concomitant]
     Indication: PRODUCT USED FOR UNKNOWN INDICATION
     Route: 042

REACTIONS (4)
  - CONFUSIONAL STATE [None]
  - DECREASED APPETITE [None]
  - REVERSIBLE POSTERIOR LEUKOENCEPHALOPATHY SYNDROME [None]
  - VOMITING [None]
